FAERS Safety Report 9398587 (Version 1)
Quarter: 2013Q3

REPORT INFORMATION
  Report Type: Spontaneous
  Country: FR (occurrence: FR)
  Receive Date: 20130712
  Receipt Date: 20130712
  Transmission Date: 20140515
  Serious: Yes (Death, Hospitalization)
  Sender: FDA-Public Use
  Company Number: FR-ASTRAZENECA-2013SE51491

PATIENT
  Age: 72 Year
  Sex: Female

DRUGS (11)
  1. ARIMIDEX [Suspect]
     Indication: BREAST CANCER METASTATIC
     Route: 048
     Dates: start: 201203
  2. CLASTOBAN [Suspect]
     Indication: BREAST CANCER METASTATIC
     Route: 048
     Dates: start: 201203, end: 201301
  3. ORBENINE [Suspect]
     Indication: INTERVERTEBRAL DISCITIS
     Route: 042
     Dates: start: 20130405, end: 20130519
  4. RIFADINE [Concomitant]
     Indication: INTERVERTEBRAL DISCITIS
     Route: 042
     Dates: start: 20130405, end: 20130424
  5. PROZAC [Concomitant]
  6. TOPALGIC [Concomitant]
  7. XANAX [Concomitant]
  8. AMLOR [Concomitant]
  9. TAHOR [Concomitant]
  10. DIAMICRON [Concomitant]
  11. ZYLORIC [Concomitant]

REACTIONS (7)
  - Pancytopenia [Fatal]
  - Myelodysplastic syndrome [Fatal]
  - Intervertebral discitis [Unknown]
  - Endocarditis [Unknown]
  - Renal failure acute [Unknown]
  - Dermatitis [Unknown]
  - Diarrhoea [Unknown]
